FAERS Safety Report 7765590-X (Version None)
Quarter: 2011Q3

REPORT INFORMATION
  Report Type: 
  Country: None (occurrence: None)
  Receive Date: 20110921
  Receipt Date: 20110912
  Transmission Date: 20111222
  Serious: Yes (Disabling, Other)
  Sender: FDA-Public Use
  Company Number: PHFR2011GB05328

PATIENT
  Weight: 60 kg

DRUGS (5)
  1. CARBAMAZEPINE [Concomitant]
     Indication: EPILEPSY
     Dosage: 100 MG, BID
     Route: 065
  2. PHENYTOIN [Concomitant]
     Indication: EPILEPSY
     Dosage: 100 MG, UNK
     Route: 065
  3. ZOLEDRONIC ACID [Suspect]
     Indication: OSTEOPOROSIS
     Dosage: 5 MG
     Route: 042
  4. LETROZOLE [Concomitant]
     Dosage: 2.5 MG, UNK
     Route: 065
  5. AMLODIPINE [Concomitant]
     Indication: HYPERTENSION
     Dosage: 5 MG, UNK
     Route: 065

REACTIONS (3)
  - PAIN IN EXTREMITY [None]
  - FATIGUE [None]
  - MALAISE [None]
